FAERS Safety Report 8823470 (Version 1)
Quarter: 2012Q4

REPORT INFORMATION
  Report Type: 
  Country: US (occurrence: US)
  Receive Date: 20121003
  Receipt Date: 20121003
  Transmission Date: 20130627
  Serious: No
  Sender: FDA-Public Use
  Company Number: US-ASTRAZENECA-2012SE74128

PATIENT
  Sex: Male

DRUGS (2)
  1. TOPROL XL [Suspect]
     Dosage: GENERIC
     Route: 048
     Dates: start: 2006, end: 2006
  2. TOPROL XL [Suspect]
     Route: 048

REACTIONS (2)
  - Oedema mouth [Unknown]
  - Swollen tongue [Unknown]
